FAERS Safety Report 5104911-3 (Version None)
Quarter: 2006Q3

REPORT INFORMATION
  Report Type: 
  Country: None (occurrence: None)
  Receive Date: 20060911
  Receipt Date: 20060911
  Transmission Date: 20061208
  Serious: Yes (Hospitalization)
  Sender: FDA-Public Use
  Company Number: None

PATIENT
  Sex: Female
  Weight: 81.6 kg

DRUGS (10)
  1. MERCAPTOPURINE [Suspect]
     Dosage: 3100 MG
  2. METHOTREXATE [Suspect]
     Dosage: 90 MG
  3. PEG-L-ASPARAGINASE (K-H) [Concomitant]
  4. VINCRISTINE SULFATE [Suspect]
     Dosage: 12 MG
  5. CYCLOPHOSPHAMIDE [Suspect]
     Dosage: 3700 MG
  6. CYTARABINE [Suspect]
     Dosage: 2310 MG
  7. DAUNORUBICIN HCL [Suspect]
     Dosage: 192 MG
  8. DEXAMETHASONE TAB [Suspect]
     Dosage: 273 MG
  9. NEURONTIN [Concomitant]
  10. PENTAMIDINE ISETHIONATE [Concomitant]

REACTIONS (16)
  - ACTIVATED PARTIAL THROMBOPLASTIN TIME PROLONGED [None]
  - AGGRESSION [None]
  - ALANINE AMINOTRANSFERASE INCREASED [None]
  - AMMONIA INCREASED [None]
  - AMNESIA [None]
  - ASPARTATE AMINOTRANSFERASE INCREASED [None]
  - BILIRUBIN CONJUGATED INCREASED [None]
  - BLOOD BILIRUBIN INCREASED [None]
  - DIZZINESS [None]
  - ENCEPHALOPATHY [None]
  - INTERNATIONAL NORMALISED RATIO INCREASED [None]
  - LOSS OF CONSCIOUSNESS [None]
  - PROTHROMBIN TIME PROLONGED [None]
  - PYREXIA [None]
  - STARING [None]
  - VOMITING [None]
